FAERS Safety Report 21391361 (Version 1)
Quarter: 2022Q3

REPORT INFORMATION
  Report Type: Spontaneous
  Country: DE (occurrence: DE)
  Receive Date: 20220929
  Receipt Date: 20220929
  Transmission Date: 20221027
  Serious: Yes (Other)
  Sender: FDA-Public Use
  Company Number: DE-TEVA-2022-DE-2077250

PATIENT
  Age: 7 Year
  Sex: Female

DRUGS (6)
  1. FLUCONAZOLE [Suspect]
     Active Substance: FLUCONAZOLE
     Indication: Cutaneous leishmaniasis
     Dosage: 200 MILLIGRAM DAILY;
     Route: 050
  2. FLUCONAZOLE [Suspect]
     Active Substance: FLUCONAZOLE
     Indication: Visceral leishmaniasis
  3. MILTEFOSINE [Suspect]
     Active Substance: MILTEFOSINE
     Indication: Cutaneous leishmaniasis
     Dosage: 2 MG/KG DAILY;
     Route: 048
  4. MILTEFOSINE [Suspect]
     Active Substance: MILTEFOSINE
     Indication: Visceral leishmaniasis
  5. METHYLBENZETHONIUM CHLORIDE\PAROMOMYCIN [Suspect]
     Active Substance: METHYLBENZETHONIUM CHLORIDE\PAROMOMYCIN
     Indication: Cutaneous leishmaniasis
     Dosage: TWICE DAILY
     Route: 061
  6. METHYLBENZETHONIUM CHLORIDE\PAROMOMYCIN [Suspect]
     Active Substance: METHYLBENZETHONIUM CHLORIDE\PAROMOMYCIN
     Indication: Visceral leishmaniasis
     Dosage: TWICE DAILY
     Route: 061

REACTIONS (3)
  - Local reaction [Unknown]
  - Drug ineffective [Unknown]
  - Off label use [Unknown]
